FAERS Safety Report 16163632 (Version 12)
Quarter: 2022Q4

REPORT INFORMATION
  Report Type: Spontaneous
  Country: US (occurrence: US)
  Receive Date: 20190405
  Receipt Date: 20221229
  Transmission Date: 20230113
  Serious: Yes (Hospitalization, Other)
  Sender: FDA-Public Use
  Company Number: US-INCYTE CORPORATION-2019IN003206

PATIENT

DRUGS (26)
  1. JAKAFI [Suspect]
     Active Substance: RUXOLITINIB
     Indication: Myelofibrosis
     Dosage: 10 MG, BID
     Route: 048
     Dates: start: 20180927
  2. JAKAFI [Suspect]
     Active Substance: RUXOLITINIB
     Dosage: UNK
     Route: 065
  3. JAKAFI [Suspect]
     Active Substance: RUXOLITINIB
     Dosage: 10 MILLIGRAM, BID
     Route: 048
     Dates: start: 20180801
  4. JAKAFI [Suspect]
     Active Substance: RUXOLITINIB
     Dosage: 10 MILLIGRAM, BID
     Route: 048
     Dates: start: 2019
  5. JAKAFI [Suspect]
     Active Substance: RUXOLITINIB
     Dosage: 10 MILLIGRAM, BID
     Route: 048
  6. JAKAFI [Suspect]
     Active Substance: RUXOLITINIB
     Dosage: 10 MILLIGRAM, (2 TABS) BID
     Route: 048
     Dates: start: 20210505
  7. JAKAFI [Suspect]
     Active Substance: RUXOLITINIB
     Dosage: 10 MILLIGRAM (2 TABLETS), BID
     Route: 048
     Dates: start: 202105
  8. JAKAFI [Suspect]
     Active Substance: RUXOLITINIB
     Dosage: 10 MILLIGRAM, BID
     Route: 048
     Dates: start: 20180801
  9. JAKAFI [Suspect]
     Active Substance: RUXOLITINIB
     Dosage: 20 MILLIGRAM, BID
     Route: 048
  10. JAKAFI [Suspect]
     Active Substance: RUXOLITINIB
     Dosage: UNK
     Route: 048
     Dates: end: 202211
  11. ASPIRIN [Concomitant]
     Active Substance: ASPIRIN
     Indication: Product used for unknown indication
     Route: 065
  12. ATORVASTATIN [Concomitant]
     Active Substance: ATORVASTATIN
     Indication: Product used for unknown indication
     Route: 065
  13. GABAPENTIN [Concomitant]
     Active Substance: GABAPENTIN
     Indication: Product used for unknown indication
     Dosage: 600 MG, UNK
     Route: 065
  14. GABAPENTIN [Concomitant]
     Active Substance: GABAPENTIN
     Dosage: 800 MG, UNK
     Route: 065
  15. GABAPENTIN [Concomitant]
     Active Substance: GABAPENTIN
     Dosage: 1200 MILLIGRAM, BID
     Route: 065
  16. IBUPROFEN [Concomitant]
     Active Substance: IBUPROFEN
     Indication: Product used for unknown indication
     Route: 065
  17. METOPROLOL [Concomitant]
     Active Substance: METOPROLOL
     Indication: Product used for unknown indication
     Dosage: 100 MG, UNK
     Route: 065
  18. METOPROLOL [Concomitant]
     Active Substance: METOPROLOL
     Dosage: 50 MG, UNK
     Route: 065
  19. ZYRTEC [Concomitant]
     Active Substance: CETIRIZINE HYDROCHLORIDE
     Indication: Product used for unknown indication
     Route: 065
  20. PROCRIT [Concomitant]
     Active Substance: ERYTHROPOIETIN
     Indication: Product used for unknown indication
     Route: 065
  21. PRO FE [Concomitant]
     Indication: Product used for unknown indication
     Dosage: 180 MILLIGRAM
     Route: 065
  22. VITAMIN D3 [Concomitant]
     Active Substance: CHOLECALCIFEROL
     Indication: Product used for unknown indication
     Dosage: 1250 MICROGRAM, TWICE A WEEK
     Route: 065
  23. ALLOPURINOL [Concomitant]
     Active Substance: ALLOPURINOL
     Indication: Product used for unknown indication
     Route: 065
  24. VITAMIN B12 [Concomitant]
     Active Substance: CYANOCOBALAMIN
     Indication: Product used for unknown indication
     Route: 065
  25. RETACRIT [Concomitant]
     Active Substance: EPOETIN ALFA-EPBX
     Indication: Product used for unknown indication
     Dosage: UNK, WEEKLY
     Route: 065
  26. VONJO [Concomitant]
     Active Substance: PACRITINIB
     Indication: Product used for unknown indication
     Dosage: UNK
     Route: 065

REACTIONS (38)
  - Haematological malignancy [Unknown]
  - Cellulitis [Unknown]
  - Vertigo [Recovering/Resolving]
  - Haemoglobin decreased [Unknown]
  - Full blood count abnormal [Unknown]
  - Weight decreased [Not Recovered/Not Resolved]
  - Stress [Unknown]
  - Bone pain [Unknown]
  - Splenomegaly [Unknown]
  - Disturbance in attention [Unknown]
  - White blood cell count increased [Not Recovered/Not Resolved]
  - Haemoglobin abnormal [Not Recovered/Not Resolved]
  - Depressed mood [Unknown]
  - Anxiety [Not Recovered/Not Resolved]
  - Arthralgia [Not Recovered/Not Resolved]
  - Pruritus [Not Recovered/Not Resolved]
  - Asthenia [Not Recovered/Not Resolved]
  - Illness [Unknown]
  - Blood pressure abnormal [Unknown]
  - Heart rate abnormal [Unknown]
  - Platelet count abnormal [Unknown]
  - Skin discolouration [Recovered/Resolved]
  - Feeling abnormal [Unknown]
  - Pain [Unknown]
  - Gastric disorder [Unknown]
  - Pain in extremity [Unknown]
  - Limb injury [Unknown]
  - Blister [Unknown]
  - COVID-19 [Unknown]
  - Eating disorder [Unknown]
  - Taste disorder [Unknown]
  - Depression [Unknown]
  - Fatigue [Not Recovered/Not Resolved]
  - Anaemia [Not Recovered/Not Resolved]
  - Contusion [Unknown]
  - Platelet count decreased [Unknown]
  - Red blood cell count decreased [Unknown]
  - Balance disorder [Unknown]

NARRATIVE: CASE EVENT DATE: 20210301
